FAERS Safety Report 17483176 (Version 1)
Quarter: 2020Q1

REPORT INFORMATION
  Report Type: Spontaneous
  Country: US (occurrence: US)
  Receive Date: 20200302
  Receipt Date: 20200302
  Transmission Date: 20200409
  Serious: No
  Sender: FDA-Public Use
  Company Number: US-PFIZER INC-2020089895

PATIENT
  Age: 4 Year
  Sex: Female
  Weight: 19.5 kg

DRUGS (1)
  1. SIROLIMUS. [Suspect]
     Active Substance: SIROLIMUS
     Indication: LYMPHATIC DISORDER
     Dosage: 0.6 ML, 2X/DAY
     Route: 048
     Dates: start: 20200221

REACTIONS (3)
  - Abdominal discomfort [Recovering/Resolving]
  - Decreased appetite [Recovered/Resolved]
  - Vomiting [Unknown]

NARRATIVE: CASE EVENT DATE: 20200227
